FAERS Safety Report 8170398-X (Version None)
Quarter: 2012Q1

REPORT INFORMATION
  Report Type: 
  Country: None (occurrence: None)
  Receive Date: 20120228
  Receipt Date: 20120227
  Transmission Date: 20120608
  Serious: Yes (Hospitalization)
  Sender: FDA-Public Use
  Company Number: JP-BAYER-2011-114612

PATIENT
  Age: 51 Year
  Sex: Male
  Weight: 80 kg

DRUGS (20)
  1. ISOSORBIDE DINITRATE [Concomitant]
     Dosage: DAILY DOSE 40 MG
     Route: 062
     Dates: start: 20111130
  2. ADALAT [Concomitant]
     Dosage: 40 MG,QD
     Route: 048
     Dates: start: 20111130, end: 20111130
  3. ADALAT CC [Suspect]
     Dosage: 40 MG, BID
     Route: 048
     Dates: start: 20111201, end: 20111201
  4. URALYT [Concomitant]
     Indication: HYPERURICAEMIA
     Dosage: DAILY DOSE 2 DF
     Route: 048
     Dates: start: 20101002
  5. CONIEL [Concomitant]
     Indication: ESSENTIAL HYPERTENSION
     Dosage: TOTAL DAILY DOSE: 8 MG
     Route: 048
     Dates: start: 20111202
  6. LOSARTAN POTASSIUM [Concomitant]
     Indication: HYPERTENSION
     Dosage: 25 MG, QD
     Route: 048
     Dates: start: 20110207, end: 20111126
  7. ALLOPURINOL [Concomitant]
     Indication: HYPERURICAEMIA
     Dosage: DAILY DOSE 200 MG
     Route: 048
     Dates: start: 20050513
  8. ADALAT CC [Suspect]
     Dosage: 40 MG/ONCE IN MORNING
     Route: 048
     Dates: start: 20111126, end: 20111126
  9. TICLOPIDINE HCL [Concomitant]
     Dosage: DAILY DOSE 200 MG
     Route: 048
     Dates: start: 20111130, end: 20111130
  10. ADALAT CC [Suspect]
     Dosage: 40 MG, BID
     Route: 048
     Dates: start: 20110319, end: 20111122
  11. LOSARTAN POTASSIUM [Concomitant]
     Dosage: 25 MG, QD
     Route: 048
     Dates: start: 20111201
  12. DIOVAN [Concomitant]
     Dosage: DAILY DOSE 80 MG
     Route: 048
     Dates: start: 20111126, end: 20111130
  13. ADALAT [Concomitant]
     Indication: ESSENTIAL HYPERTENSION
     Dosage: 40 MG, QD
     Route: 048
     Dates: start: 20111126, end: 20111126
  14. ADALAT [Concomitant]
     Dosage: 40 MG, BID
     Route: 048
     Dates: start: 20111127, end: 20111129
  15. ADALAT CC [Suspect]
     Dosage: 40 MG/DAY
     Route: 048
     Dates: start: 20110309, end: 20110318
  16. ADALAT CC [Suspect]
     Dosage: 40 MG/ONCE IN EVENING
     Route: 048
     Dates: start: 20111130, end: 20111130
  17. LOSARTAN POTASSIUM [Concomitant]
     Dosage: 25 MG, QD
     Route: 048
     Dates: start: 20111201
  18. ACETYLSALICYLIC ACID SRT [Concomitant]
     Dosage: DAILY DOSE 100 MG
     Route: 048
     Dates: start: 20111130
  19. LIPITOR [Concomitant]
     Dosage: DAILY DOSE 10 MG
     Route: 048
     Dates: start: 20111130
  20. LANSOPRAZOLE [Concomitant]
     Dosage: DAILY DOSE 15 MG
     Route: 048
     Dates: start: 20111130

REACTIONS (1)
  - ACUTE MYOCARDIAL INFARCTION [None]
